FAERS Safety Report 8232151-8 (Version None)
Quarter: 2012Q1

REPORT INFORMATION
  Report Type: 
  Country: None (occurrence: None)
  Receive Date: 20120323
  Receipt Date: 20120316
  Transmission Date: 20120608
  Serious: Yes (Other)
  Sender: FDA-Public Use
  Company Number: US-US-EMD SERONO, INC.-7051843

PATIENT
  Sex: Female

DRUGS (5)
  1. HYZAAR [Concomitant]
     Indication: HYPERTENSION
  2. REBIF [Suspect]
     Indication: MULTIPLE SCLEROSIS
     Route: 058
     Dates: start: 20090313
  3. LIPITOR [Concomitant]
     Indication: HYPERLIPIDAEMIA
  4. ATENOLOL [Concomitant]
     Indication: HYPERTENSION
  5. VESICARE [Concomitant]
     Indication: BLADDER DISORDER

REACTIONS (3)
  - VOMITING [None]
  - LYMPHOMA [None]
  - METASTASES TO LYMPH NODES [None]
